FAERS Safety Report 9462069 (Version 1)
Quarter: 2013Q3

REPORT INFORMATION
  Report Type: Spontaneous
  Country: US (occurrence: None)
  Receive Date: 20130815
  Receipt Date: 20130815
  Transmission Date: 20140515
  Serious: Yes (Hospitalization)
  Sender: FDA-Public Use
  Company Number: None

PATIENT
  Age: 62 None
  Sex: Male
  Weight: 116 kg

DRUGS (9)
  1. WARFARIN [Suspect]
     Indication: ATRIAL FIBRILLATION
     Dosage: CHRONIC
     Route: 048
  2. ASA [Suspect]
     Dosage: CHRONIC
     Route: 048
  3. CELEBREX [Suspect]
     Indication: OSTEOPOROSIS
     Dosage: CHRONIC
     Route: 048
  4. HCTZ [Concomitant]
  5. LISINOPRIL [Concomitant]
  6. AMLODIPINE/ATORVASTATIN [Concomitant]
  7. CARVEDILOL [Concomitant]
  8. TEMAZEPAM [Concomitant]
  9. COZAAR [Concomitant]

REACTIONS (1)
  - Adenocarcinoma [None]
